FAERS Safety Report 6028905-9 (Version None)
Quarter: 2009Q1

REPORT INFORMATION
  Report Type: 
  Country: None (occurrence: None)
  Receive Date: 20090105
  Receipt Date: 20090105
  Transmission Date: 20090719
  Serious: Yes (Other)
  Sender: FDA-Public Use
  Company Number: None

PATIENT
  Age: 62 Year
  Sex: Male
  Weight: 58.9676 kg

DRUGS (1)
  1. HYTRIN [Suspect]
     Indication: DYSURIA
     Dosage: 3 MG DAILY PO
     Route: 048
     Dates: start: 20080101, end: 20081218

REACTIONS (1)
  - LUNG NEOPLASM MALIGNANT [None]
